FAERS Safety Report 5483549-2 (Version None)
Quarter: 2007Q4

REPORT INFORMATION
  Report Type: 
  Country: None (occurrence: None)
  Receive Date: 20071010
  Receipt Date: 20071010
  Transmission Date: 20080405
  Serious: No
  Sender: FDA-Public Use
  Company Number: None

PATIENT
  Age: 47 Year
  Sex: Male
  Weight: 85.2762 kg

DRUGS (4)
  1. LEVAQUIN [Suspect]
     Indication: PYREXIA
     Dosage: 1           1 X 1 PO
     Route: 048
     Dates: start: 20070308, end: 20070315
  2. LEVAQUIN [Suspect]
     Indication: SINUSITIS
     Dosage: 1           1 X 1 PO
     Route: 048
     Dates: start: 20070308, end: 20070315
  3. LEVAQUIN [Suspect]
     Indication: PYREXIA
     Dosage: 1           1 X 1 PO
     Route: 048
     Dates: start: 20070821, end: 20070901
  4. LEVAQUIN [Suspect]
     Indication: SINUSITIS
     Dosage: 1           1 X 1 PO
     Route: 048
     Dates: start: 20070821, end: 20070901

REACTIONS (6)
  - BURNING SENSATION [None]
  - GAIT DISTURBANCE [None]
  - HYPOAESTHESIA [None]
  - MYALGIA [None]
  - PAIN OF SKIN [None]
  - WEIGHT DECREASED [None]
